FAERS Safety Report 4591300-3 (Version None)
Quarter: 2005Q1

REPORT INFORMATION
  Report Type: 
  Country: None (occurrence: None)
  Receive Date: 20050225
  Receipt Date: 20050113
  Transmission Date: 20050727
  Serious: Yes (Other)
  Sender: FDA-Public Use
  Company Number: DE-ROCHE-392305

PATIENT
  Sex: Female
  Weight: 0.3 kg

DRUGS (6)
  1. FUZEON [Suspect]
     Indication: HIV INFECTION
     Dates: start: 20031212
  2. VIDEX [Suspect]
     Indication: HIV INFECTION
     Dosage: DOSE REPORTED AS 250 PER DAY.
     Dates: start: 20030103
  3. VIREAD [Suspect]
     Indication: HIV INFECTION
     Dosage: DOSE REPORTED AS 245 PER DAY.
     Dates: start: 20030103
  4. KALETRA [Suspect]
     Indication: HIV INFECTION
     Dosage: DOSE REPORTED AS 500 PER DAY.
     Dates: start: 20040809
  5. RITONAVIR [Suspect]
     Indication: HIV INFECTION
     Dosage: DOSE REPORTED AS 200 PER DAY.
     Dates: start: 20031212, end: 20040729
  6. REYATAZ [Concomitant]
     Indication: HIV INFECTION
     Dosage: DOSE REPORTED AS 300 PER DAY.
     Dates: start: 20040809

REACTIONS (4)
  - ASPHYXIA [None]
  - DRUG EXPOSURE DURING PREGNANCY [None]
  - FOETAL DISORDER [None]
  - INTRA-UTERINE DEATH [None]
